FAERS Safety Report 17564124 (Version 1)
Quarter: 2020Q1

REPORT INFORMATION
  Report Type: Spontaneous
  Country: DE (occurrence: DE)
  Receive Date: 20200320
  Receipt Date: 20200320
  Transmission Date: 20200409
  Serious: Yes (Other)
  Sender: FDA-Public Use
  Company Number: DE-ALK-ABELLO A/S-2020AA000364

PATIENT

DRUGS (4)
  1. SALBUTAMOL [Concomitant]
     Active Substance: ALBUTEROL
     Route: 055
  2. L-THYROXIN [Concomitant]
     Active Substance: LEVOTHYROXINE SODIUM
     Dosage: UNK
     Route: 048
  3. MOMETASONE [Concomitant]
     Active Substance: MOMETASONE
     Dosage: UNK
     Route: 045
  4. ACARIZAX [Suspect]
     Active Substance: DERMATOPHAGOIDES FARINAE\DERMATOPHAGOIDES PTERONYSSINUS
     Indication: ASTHMA
     Dosage: 12 SQ-HDM, QD
     Route: 060
     Dates: start: 20190226, end: 20190718

REACTIONS (6)
  - Asthma [Unknown]
  - Dyspnoea [Recovered/Resolved]
  - Pulmonary function test decreased [Unknown]
  - Nasal obstruction [Recovered/Resolved]
  - Seasonal allergy [Unknown]
  - Condition aggravated [Unknown]
